FAERS Safety Report 6477767-4 (Version None)
Quarter: 2009Q4

REPORT INFORMATION
  Report Type: 
  Country: None (occurrence: None)
  Receive Date: 20091207
  Receipt Date: 20091125
  Transmission Date: 20100525
  Serious: Yes (Other)
  Sender: FDA-Public Use
  Company Number: SE-PFIZER INC-2009302949

PATIENT
  Age: 17 Year
  Sex: Female

DRUGS (6)
  1. LYRICA [Suspect]
     Indication: GENERALISED ANXIETY DISORDER
     Dosage: 75 MG, 2X/DAY
     Dates: start: 20090901
  2. LYRICA [Suspect]
     Indication: AFFECT LABILITY
  3. LYRICA [Suspect]
     Indication: BORDERLINE PERSONALITY DISORDER
  4. LAMICTAL [Concomitant]
     Indication: AFFECT LABILITY
     Dosage: 50 MG, 3X/DAY
     Dates: start: 20090101
  5. LAMICTAL [Concomitant]
     Indication: BORDERLINE PERSONALITY DISORDER
  6. LAMICTAL [Concomitant]
     Indication: GENERALISED ANXIETY DISORDER

REACTIONS (2)
  - MYOCLONUS [None]
  - PANIC ATTACK [None]
